FAERS Safety Report 9110131 (Version 1)
Quarter: 2013Q1

REPORT INFORMATION
  Report Type: Spontaneous
  Country: US (occurrence: US)
  Receive Date: 20130222
  Receipt Date: 20130222
  Transmission Date: 20140127
  Serious: Yes (Hospitalization)
  Sender: FDA-Public Use
  Company Number: US-BAYER-2013-020193

PATIENT
  Age: 44 Year
  Sex: Female
  Weight: 84.35 kg

DRUGS (9)
  1. YASMIN [Suspect]
     Indication: UTERINE LEIOMYOMA
  2. YASMIN [Suspect]
     Indication: DYSMENORRHOEA
  3. YASMIN [Suspect]
     Indication: POLYCYSTIC OVARIES
  4. CALCIUM CARBONATE [Concomitant]
  5. NAPROXEN [Concomitant]
     Dosage: 500 MG, BID
  6. ZOFRAN [Concomitant]
  7. VITAMIN D [Concomitant]
  8. MULTIVITAMIN [Concomitant]
  9. ZANAFLEX [Concomitant]
     Indication: MUSCLE SPASMS

REACTIONS (7)
  - Pulmonary embolism [None]
  - Deep vein thrombosis [None]
  - Dyspnoea [None]
  - Chest discomfort [None]
  - Myalgia [None]
  - Pain in extremity [None]
  - Off label use [None]
